FAERS Safety Report 9257085 (Version 1)
Quarter: 2013Q1

REPORT INFORMATION
  Report Type: Spontaneous
  Country: US (occurrence: None)
  Receive Date: 20121212
  Receipt Date: 20121212
  Transmission Date: 20140127
  Serious: No
  Sender: FDA-Public Use
  Company Number: 1207USA002588

PATIENT
  Sex: 0

DRUGS (3)
  1. VICTRELIS [Suspect]
     Route: 048
     Dates: start: 20120705
  2. REBETOL [Suspect]
     Route: 048
  3. PEGASYS [Suspect]

REACTIONS (1)
  - Abdominal discomfort [None]
